FAERS Safety Report 5492889-2 (Version None)
Quarter: 2007Q4

REPORT INFORMATION
  Report Type: 
  Country: None (occurrence: None)
  Receive Date: 20071018
  Receipt Date: 20071003
  Transmission Date: 20080405
  Serious: Yes (Life-Threatening)
  Sender: FDA-Public Use
  Company Number: 162378ISR

PATIENT
  Sex: Male

DRUGS (8)
  1. VINCRISTINE [Suspect]
     Indication: NON-HODGKIN'S LYMPHOMA
     Dosage: 1.9 MG (1.9 MG, 1 IN 21 D), INTRAVENOUS, 1 MG (1 MG), INTRAVENOUS
     Route: 042
     Dates: start: 20070608, end: 20070629
  2. VINCRISTINE [Suspect]
     Indication: NON-HODGKIN'S LYMPHOMA
     Dosage: 1.9 MG (1.9 MG, 1 IN 21 D), INTRAVENOUS, 1 MG (1 MG), INTRAVENOUS
     Route: 042
     Dates: start: 20070720, end: 20070720
  3. CYCLOPHOSPHAMIDE [Suspect]
     Indication: NON-HODGKIN'S LYMPHOMA
     Dosage: (1450 MG, 1 IN 21 D), INTRAVENOUS
     Route: 042
     Dates: start: 20070608, end: 20070720
  4. PREDNISONE [Concomitant]
  5. RITUXIMAB [Concomitant]
  6. LORAZEPAM [Concomitant]
  7. METOCLOPRAMIDE [Concomitant]
  8. GRANISETRON  HCL [Concomitant]

REACTIONS (4)
  - HEPATIC FUNCTION ABNORMAL [None]
  - HEPATITIS [None]
  - NAUSEA [None]
  - NEUROPATHY [None]
